FAERS Safety Report 18191823 (Version 7)
Quarter: 2023Q1

REPORT INFORMATION
  Report Type: Report from Study
  Country: BR (occurrence: BR)
  Receive Date: 20200825
  Receipt Date: 20230112
  Transmission Date: 20230417
  Serious: Yes (Other)
  Sender: FDA-Public Use
  Company Number: BR-NOVARTISPH-PHHY2019BR179680

PATIENT
  Age: 48 Year
  Sex: Male
  Weight: 95 kg

DRUGS (12)
  1. COSENTYX [Suspect]
     Active Substance: SECUKINUMAB
     Indication: Ankylosing spondylitis
     Dosage: 1 DOSAGE FORM, QMO
     Route: 058
     Dates: start: 20181128
  2. COSENTYX [Suspect]
     Active Substance: SECUKINUMAB
     Dosage: UNK
     Route: 065
     Dates: start: 20181130
  3. COSENTYX [Suspect]
     Active Substance: SECUKINUMAB
     Dosage: 150 MG
     Route: 065
  4. COSENTYX [Suspect]
     Active Substance: SECUKINUMAB
     Dosage: 150 MG
     Route: 065
     Dates: start: 2020
  5. COSENTYX [Suspect]
     Active Substance: SECUKINUMAB
     Dosage: UNK
     Route: 058
     Dates: start: 20200727
  6. COSENTYX [Suspect]
     Active Substance: SECUKINUMAB
     Dosage: UNK
     Route: 065
  7. COSENTYX [Suspect]
     Active Substance: SECUKINUMAB
     Dosage: UNK
     Route: 065
     Dates: start: 202201
  8. COSENTYX [Suspect]
     Active Substance: SECUKINUMAB
     Dosage: (LAST APPLICATION)
     Route: 065
     Dates: start: 20220327
  9. COSENTYX [Suspect]
     Active Substance: SECUKINUMAB
     Dosage: 1 DOSAGE FORM (LAST APPLICATION)
     Route: 065
     Dates: start: 20221027
  10. COSENTYX [Suspect]
     Active Substance: SECUKINUMAB
     Dosage: 1 DOSAGE FORM, EVER 15 DAYS
     Route: 058
     Dates: start: 202211
  11. ZOLPIDEM [Suspect]
     Active Substance: ZOLPIDEM TARTRATE
     Indication: Sleep disorder
     Dosage: UNK
     Route: 065
  12. SALINE [Concomitant]
     Active Substance: SODIUM CHLORIDE
     Indication: Product used for unknown indication
     Route: 065

REACTIONS (25)
  - Ankylosing spondylitis [Unknown]
  - Exercise tolerance decreased [Unknown]
  - Gait disturbance [Recovering/Resolving]
  - Pain [Recovered/Resolved]
  - Mass [Unknown]
  - Pain [Unknown]
  - Spinal disorder [Unknown]
  - Tendon pain [Unknown]
  - Bursitis [Unknown]
  - Mobility decreased [Unknown]
  - Insomnia [Unknown]
  - Stress [Unknown]
  - Spinal pain [Unknown]
  - Inflammation [Unknown]
  - Accident [Unknown]
  - Malaise [Unknown]
  - Arthropathy [Unknown]
  - Ill-defined disorder [Unknown]
  - Spinal column injury [Unknown]
  - Pain [Recovered/Resolved]
  - Off label use [Unknown]
  - Therapeutic response delayed [Unknown]
  - Therapeutic product effect incomplete [Recovered/Resolved]
  - Therapeutic response shortened [Not Recovered/Not Resolved]
  - Drug ineffective [Unknown]

NARRATIVE: CASE EVENT DATE: 20190726
